FAERS Safety Report 7343452-X (Version None)
Quarter: 2011Q1

REPORT INFORMATION
  Report Type: 
  Country: None (occurrence: None)
  Receive Date: 20110310
  Receipt Date: 20100917
  Transmission Date: 20110831
  Serious: Yes (Hospitalization, Other)
  Sender: FDA-Public Use
  Company Number: US-BAYER-201028553NA

PATIENT
  Sex: Female
  Weight: 57.596 kg

DRUGS (7)
  1. ASPIRIN [Concomitant]
     Indication: PRODUCT USED FOR UNKNOWN INDICATION
  2. YASMIN [Suspect]
     Indication: ACNE
     Dosage: UNK
     Dates: start: 20050301, end: 20050701
  3. YASMIN [Suspect]
     Indication: PREMENSTRUAL SYNDROME
  4. MACROBID [Concomitant]
     Indication: PRODUCT USED FOR UNKNOWN INDICATION
  5. YAZ [Suspect]
     Indication: ACNE
     Route: 048
     Dates: start: 20060601, end: 20080801
  6. YAZ [Suspect]
     Indication: PREMENSTRUAL SYNDROME
  7. ROBAXIN [Concomitant]
     Indication: PRODUCT USED FOR UNKNOWN INDICATION

REACTIONS (5)
  - MUSCULOSKELETAL CHEST PAIN [None]
  - PULMONARY EMBOLISM [None]
  - OEDEMA PERIPHERAL [None]
  - DEEP VEIN THROMBOSIS [None]
  - PAIN IN EXTREMITY [None]
